FAERS Safety Report 7925518-6 (Version None)
Quarter: 2011Q4

REPORT INFORMATION
  Report Type: 
  Country: None (occurrence: None)
  Receive Date: 20111118
  Receipt Date: 20101119
  Transmission Date: 20120403
  Serious: No
  Sender: FDA-Public Use
  Company Number: US-AMGEN-USASP2010005911

PATIENT
  Age: 4 Year
  Sex: Female

DRUGS (3)
  1. METHOTREXATE [Concomitant]
     Dosage: 1 MG, QWK
     Dates: start: 20080101
  2. HUMIRA [Concomitant]
  3. ENBREL [Suspect]
     Indication: JUVENILE ARTHRITIS
     Dosage: 25 MG, QWK
     Dates: start: 20080219

REACTIONS (7)
  - PAIN IN EXTREMITY [None]
  - URINARY TRACT INFECTION [None]
  - INJECTION SITE SWELLING [None]
  - INJECTION SITE ERYTHEMA [None]
  - OEDEMA PERIPHERAL [None]
  - BACK PAIN [None]
  - INJECTION SITE PAIN [None]
